FAERS Safety Report 5026921-7 (Version None)
Quarter: 2006Q2

REPORT INFORMATION
  Report Type: 
  Country: None (occurrence: None)
  Receive Date: 20060609
  Receipt Date: 20060531
  Transmission Date: 20061013
  Serious: Yes (Other)
  Sender: FDA-Public Use
  Company Number: 2006071417

PATIENT
  Age: 47 Year
  Sex: Female

DRUGS (2)
  1. NEURONTIN [Suspect]
     Indication: BACK PAIN
     Dosage: 2400 MG (800 MG, 3 IN 1 D), ORAL
     Route: 048
  2. VASOTEC [Concomitant]

REACTIONS (1)
  - RASH GENERALISED [None]
